FAERS Safety Report 9701911 (Version 1)
Quarter: 2013Q4

REPORT INFORMATION
  Report Type: Spontaneous
  Country: US (occurrence: US)
  Receive Date: 20131121
  Receipt Date: 20131121
  Transmission Date: 20140711
  Serious: Yes (Other)
  Sender: FDA-Public Use
  Company Number: US-GILEAD-2013-0087696

PATIENT
  Sex: Female

DRUGS (1)
  1. HEPSERA [Suspect]
     Indication: HEPATITIS B

REACTIONS (3)
  - Viral load increased [Unknown]
  - Intentional underdose [Unknown]
  - Pregnancy [Not Recovered/Not Resolved]
